FAERS Safety Report 13084289 (Version 1)
Quarter: 2017Q1

REPORT INFORMATION
  Report Type: Spontaneous
  Country: US (occurrence: US)
  Receive Date: 20170101
  Receipt Date: 20170101
  Transmission Date: 20170428
  Serious: Yes (Other)
  Sender: FDA-Public Use
  Company Number: None

PATIENT
  Age: 35 Year
  Sex: Female

DRUGS (8)
  1. B BLOCK [Concomitant]
  2. ENAP5 [Concomitant]
  3. ADCO [Concomitant]
  4. PAROXETINE. [Concomitant]
     Active Substance: PAROXETINE
  5. GLUCONORM [Concomitant]
     Active Substance: REPAGLINIDE
  6. BAYER ASPIRIN [Concomitant]
     Active Substance: ASPIRIN
  7. STORWIN [Concomitant]
  8. BETADINE [Suspect]
     Active Substance: POVIDONE-IODINE
     Indication: LACERATION
     Route: 061
     Dates: start: 20161228, end: 20161229

REACTIONS (3)
  - Application site vesicles [None]
  - Application site burn [None]
  - Application site pain [None]

NARRATIVE: CASE EVENT DATE: 20161228
